FAERS Safety Report 12844122 (Version 2)
Quarter: 2016Q4

REPORT INFORMATION
  Report Type: Spontaneous
  Country: FR (occurrence: FR)
  Receive Date: 20161013
  Receipt Date: 20161109
  Transmission Date: 20170207
  Serious: Yes (Life-Threatening, Other)
  Sender: FDA-Public Use
  Company Number: FR-PFIZER INC-2016475495

PATIENT
  Age: 39 Year
  Sex: Female

DRUGS (4)
  1. PROPOFOL LIPURO [Suspect]
     Active Substance: PROPOFOL
     Indication: GENERAL ANAESTHESIA
     Dosage: 200 MG, SINGLE
     Route: 042
     Dates: start: 20161010, end: 20161010
  2. ATRACURIUM BESILATE [Suspect]
     Active Substance: ATRACURIUM BESYLATE
     Indication: GENERAL ANAESTHESIA
     Dosage: 30 MG, SINGLE
     Route: 042
     Dates: start: 20161010, end: 20161010
  3. KETAMINE PANPHARMA [Suspect]
     Active Substance: KETAMINE
     Indication: GENERAL ANAESTHESIA
     Dosage: 15 MG, SINGLE
     Route: 042
     Dates: start: 20161010, end: 20161010
  4. CEFAZOLINE PANPHARMA [Suspect]
     Active Substance: CEFAZOLIN SODIUM
     Indication: ANTIBIOTIC PROPHYLAXIS
     Dosage: 2 G, SINGLE
     Route: 042
     Dates: start: 20161010, end: 20161010

REACTIONS (3)
  - Anaphylactic shock [Recovered/Resolved]
  - Rash [Recovered/Resolved]
  - Hypotension [Unknown]

NARRATIVE: CASE EVENT DATE: 20161010
